FAERS Safety Report 18545475 (Version 1)
Quarter: 2020Q4

REPORT INFORMATION
  Report Type: Other
  Country: IT (occurrence: IT)
  Receive Date: 20201125
  Receipt Date: 20201125
  Transmission Date: 20210114
  Serious: Yes (Life-Threatening, Hospitalization, Other)
  Sender: FDA-Public Use
  Company Number: IT-CHIESI USA, INC.-IT-2020CHI000660

PATIENT

DRUGS (16)
  1. CANGRELOR [Suspect]
     Active Substance: CANGRELOR
     Indication: ANTIPLATELET THERAPY
     Dosage: 30 ?G/KG, UNK
     Route: 042
  2. WARFARIN [Suspect]
     Active Substance: WARFARIN
     Indication: ANTIPLATELET THERAPY
     Dosage: 30 ?G/KG, UNK
     Route: 042
  3. ACETYLSALICYLIC ACID [Concomitant]
     Active Substance: ASPIRIN
     Indication: ANTIPLATELET THERAPY
     Dosage: 100 MG, QD
     Route: 048
  4. CANGRELOR [Suspect]
     Active Substance: CANGRELOR
     Dosage: 4 MG/KG, OTHER
     Route: 042
  5. TIROFIBAN [Suspect]
     Active Substance: TIROFIBAN
     Indication: ANTIPLATELET THERAPY
     Dosage: 0.1 ?G/KG, OTHER
     Route: 042
  6. ATORVASTATIN [Concomitant]
     Active Substance: ATORVASTATIN
     Indication: ANTIPLATELET THERAPY
     Dosage: 80 MG, QD
  7. BISOPROLOL [Concomitant]
     Active Substance: BISOPROLOL
     Indication: PRODUCT USED FOR UNKNOWN INDICATION
     Dosage: 2.5 MG, QD
  8. MORPHINE [Suspect]
     Active Substance: MORPHINE
     Indication: ANTIPLATELET THERAPY
     Dosage: 3 MG, UNK
     Route: 042
  9. TIROFIBAN [Suspect]
     Active Substance: TIROFIBAN
     Dosage: 0.4 ?G/KG, OTHER
     Route: 042
  10. FENTANYL. [Suspect]
     Active Substance: FENTANYL
     Indication: PRODUCT USED FOR UNKNOWN INDICATION
     Dosage: 0.1 MG, UNK
     Route: 065
  11. TICAGRELOR. [Suspect]
     Active Substance: TICAGRELOR
     Indication: ACUTE CORONARY SYNDROME
     Dosage: 90 MG, UNK
     Route: 065
  12. TICAGRELOR. [Suspect]
     Active Substance: TICAGRELOR
     Indication: ANTIPLATELET THERAPY
     Dosage: 180 MG, UNK
     Route: 065
  13. HEPARIN [Suspect]
     Active Substance: HEPARIN SODIUM
     Indication: PRODUCT USED FOR UNKNOWN INDICATION
     Dosage: UNK
     Route: 065
  14. EVEROLIMUS. [Concomitant]
     Active Substance: EVEROLIMUS
     Indication: ACUTE CORONARY SYNDROME
     Dosage: UNK
  15. ACETYLSALICYLIC ACID [Concomitant]
     Active Substance: ASPIRIN
     Indication: ANTIPLATELET THERAPY
     Dosage: 250 MG, UNK
     Route: 042
  16. RAMIPRIL. [Concomitant]
     Active Substance: RAMIPRIL
     Indication: PRODUCT USED FOR UNKNOWN INDICATION
     Dosage: 5 MG, QD

REACTIONS (15)
  - Erythema [Unknown]
  - Acute myocardial infarction [Unknown]
  - Nausea [Unknown]
  - Colitis ischaemic [Unknown]
  - Hypotension [Unknown]
  - Rectal haemorrhage [Unknown]
  - Eosinophilia [Unknown]
  - Electrocardiogram ST segment elevation [Unknown]
  - Vascular stent thrombosis [Unknown]
  - Drug level decreased [Unknown]
  - Thrombocytopenia [Unknown]
  - Eosinophil cationic protein increased [Unknown]
  - Off label use [Unknown]
  - Drug interaction [Unknown]
  - Hypersensitivity [Unknown]
